FAERS Safety Report 4834412-9 (Version None)
Quarter: 2005Q4

REPORT INFORMATION
  Report Type: 
  Country: None (occurrence: None)
  Receive Date: 20051122
  Receipt Date: 20051110
  Transmission Date: 20060501
  Serious: Yes (Hospitalization)
  Sender: FDA-Public Use
  Company Number: PHNU2005DE03720

PATIENT
  Age: 58 Year
  Sex: Female

DRUGS (2)
  1. TEGRETOL [Suspect]
     Dosage: 400 MG/DAY
     Route: 065
     Dates: start: 19991108, end: 19991111
  2. DOMINAL FORTE [Suspect]
     Dosage: 40 MG/DAY
     Route: 065
     Dates: start: 19990825, end: 19990906

REACTIONS (4)
  - BLOOD AMYLASE INCREASED [None]
  - DRUG TOXICITY [None]
  - LIPASE INCREASED [None]
  - PANCREATIC ENZYMES INCREASED [None]
